FAERS Safety Report 7267351-7 (Version None)
Quarter: 2011Q1

REPORT INFORMATION
  Report Type: 
  Country: None (occurrence: None)
  Receive Date: 20110201
  Receipt Date: 20100608
  Transmission Date: 20110831
  Serious: No
  Sender: FDA-Public Use
  Company Number: A0859567A

PATIENT
  Age: 68 Year
  Sex: Male

DRUGS (6)
  1. DIABETES MEDICATION [Concomitant]
  2. MEDICATION FOR HIGH BLOOD PRESSURE [Concomitant]
  3. MULTIVITAMIN [Concomitant]
  4. MUSCLE RELAXER [Concomitant]
  5. PAIN RELIEVER [Concomitant]
  6. ARIXTRA [Suspect]
     Indication: THROMBOSIS PROPHYLAXIS
     Dosage: 2.5MG PER DAY
     Route: 058
     Dates: start: 20100506, end: 20100511

REACTIONS (2)
  - HYPERSENSITIVITY [None]
  - RASH [None]
